FAERS Safety Report 20115764 (Version 1)
Quarter: 2021Q4

REPORT INFORMATION
  Report Type: Spontaneous
  Country: CO (occurrence: CO)
  Receive Date: 20211126
  Receipt Date: 20211126
  Transmission Date: 20220303
  Serious: Yes (Death, Other)
  Sender: FDA-Public Use
  Company Number: CO-GYP-000002

PATIENT
  Age: 9 Year

DRUGS (1)
  1. PREDNISONE [Suspect]
     Active Substance: PREDNISONE
     Indication: Philadelphia positive acute lymphocytic leukaemia
     Route: 065

REACTIONS (4)
  - Drug ineffective [Unknown]
  - Philadelphia positive acute lymphocytic leukaemia [Fatal]
  - Gene mutation [Unknown]
  - Neoplasm recurrence [Fatal]
